FAERS Safety Report 17169165 (Version 1)
Quarter: 2019Q4

REPORT INFORMATION
  Report Type: Report from Study
  Country: US (occurrence: US)
  Receive Date: 20191218
  Receipt Date: 20191218
  Transmission Date: 20200122
  Serious: Yes (Hospitalization)
  Sender: FDA-Public Use
  Company Number: US-EISAI MEDICAL RESEARCH-EC-2019-062099

PATIENT
  Age: 63 Year
  Sex: Female
  Weight: 71 kg

DRUGS (12)
  1. VENTOLIN HFA [Concomitant]
     Active Substance: ALBUTEROL SULFATE
  2. ONGLYZA [Concomitant]
     Active Substance: SAXAGLIPTIN HYDROCHLORIDE
  3. DULERA [Concomitant]
     Active Substance: FORMOTEROL FUMARATE DIHYDRATE\MOMETASONE FUROATE
  4. LISINOPRIL. [Concomitant]
     Active Substance: LISINOPRIL
  5. HYDROCODONE/ACETAMINOPHEN [Concomitant]
     Active Substance: ACETAMINOPHEN\HYDROCODONE
  6. LENVIMA [Suspect]
     Active Substance: LENVATINIB
     Indication: HEPATOCELLULAR CARCINOMA
     Route: 048
     Dates: start: 20190824, end: 201912
  7. CALCIUM [Concomitant]
     Active Substance: CALCIUM
  8. CINNAMON. [Concomitant]
     Active Substance: CINNAMON
  9. LENVIMA [Suspect]
     Active Substance: LENVATINIB
     Route: 048
     Dates: start: 201912
  10. HUMALOG [Concomitant]
     Active Substance: INSULIN LISPRO
  11. FOSAMAX [Concomitant]
     Active Substance: ALENDRONATE SODIUM
  12. LEVEMIR [Concomitant]
     Active Substance: INSULIN DETEMIR

REACTIONS (5)
  - Malaise [Unknown]
  - Retinal tear [Unknown]
  - Blister [Not Recovered/Not Resolved]
  - Hyperkeratosis [Not Recovered/Not Resolved]
  - Constipation [Unknown]

NARRATIVE: CASE EVENT DATE: 2019
